FAERS Safety Report 24055937 (Version 1)
Quarter: 2024Q3

REPORT INFORMATION
  Report Type: Spontaneous
  Country: ES (occurrence: ES)
  Receive Date: 20240705
  Receipt Date: 20240705
  Transmission Date: 20241016
  Serious: Yes (Death, Life-Threatening, Other)
  Sender: AMGEN
  Company Number: ES-AMGEN-ESPSP2024129158

PATIENT

DRUGS (2)
  1. ROMIPLOSTIM [Suspect]
     Active Substance: ROMIPLOSTIM
     Indication: Immune thrombocytopenia
     Dosage: UNK
     Route: 065
  2. FOSTAMATINIB [Suspect]
     Active Substance: FOSTAMATINIB
     Indication: Immune thrombocytopenia
     Dosage: UNK
     Route: 065

REACTIONS (32)
  - Gastrointestinal haemorrhage [Unknown]
  - Acute myocardial infarction [Fatal]
  - Cerebral haemorrhage [Fatal]
  - Hypertension [Fatal]
  - Neutropenia [Unknown]
  - Adverse event [Unknown]
  - Embolism venous [Unknown]
  - Maculopathy [Unknown]
  - Treatment failure [Unknown]
  - Oral mucosal blistering [Unknown]
  - Gingival bleeding [Unknown]
  - Heavy menstrual bleeding [Unknown]
  - Petechiae [Unknown]
  - Haematuria [Unknown]
  - Epistaxis [Unknown]
  - Contusion [Unknown]
  - Hypophosphataemia [Unknown]
  - Oral herpes [Unknown]
  - Liver function test abnormal [Unknown]
  - Muscle spasms [Unknown]
  - Stomatitis [Unknown]
  - Pruritus [Unknown]
  - Depression [Unknown]
  - Migraine [Unknown]
  - Vertigo [Unknown]
  - Asthenia [Unknown]
  - Decreased appetite [Unknown]
  - Nausea [Unknown]
  - Myalgia [Unknown]
  - Dyspepsia [Unknown]
  - Diarrhoea [Unknown]
  - Erythromelalgia [Unknown]
